FAERS Safety Report 7079054-2 (Version None)
Quarter: 2010Q4

REPORT INFORMATION
  Report Type: 
  Country: None (occurrence: None)
  Receive Date: 20101021
  Receipt Date: 20101005
  Transmission Date: 20110411
  Serious: Yes (Hospitalization, Other)
  Sender: FDA-Public Use
  Company Number: 2010BI027248

PATIENT
  Age: 58 Year
  Sex: Male

DRUGS (10)
  1. ZEVALIN [Suspect]
     Indication: NON-HODGKIN'S LYMPHOMA RECURRENT
     Dosage: 0.4 MCI/KG; 1X; IV
     Route: 042
     Dates: start: 20100201, end: 20100201
  2. ZEVALIN [Suspect]
     Indication: STEM CELL TRANSPLANT
     Dosage: 0.4 MCI/KG; 1X; IV
     Route: 042
     Dates: start: 20100201, end: 20100201
  3. RITUXIMAB [Concomitant]
  4. CLAMOXYL [Concomitant]
  5. BACTRIM [Concomitant]
  6. VALACYCLOVIR HYDROCHLORIDE [Concomitant]
  7. FLUDARABINE PHOSPHATE [Concomitant]
  8. BUSULFAN [Concomitant]
  9. THYMOGLOBULIN [Concomitant]
  10. CYCLOSPORINE [Concomitant]

REACTIONS (4)
  - BONE MARROW FAILURE [None]
  - ERYTHEMA [None]
  - GASTROINTESTINAL DISORDER [None]
  - HYPERTHERMIA [None]
